FAERS Safety Report 6447122-1 (Version None)
Quarter: 2009Q4

REPORT INFORMATION
  Report Type: 
  Country: None (occurrence: None)
  Receive Date: 20091119
  Receipt Date: 20091113
  Transmission Date: 20100525
  Serious: Yes (Disabling, Other)
  Sender: FDA-Public Use
  Company Number: BR-PFIZER INC-2009284147

PATIENT
  Age: 66 Year
  Sex: Male
  Weight: 108.84 kg

DRUGS (4)
  1. LIPITOR [Suspect]
     Indication: BLOOD TRIGLYCERIDES INCREASED
     Dosage: 10 MG, UNK
     Route: 048
  2. LIPITOR [Suspect]
     Indication: BLOOD CHOLESTEROL INCREASED
     Dosage: 20 MG, 1X/DAY
     Route: 048
  3. AVANDAMET [Concomitant]
     Indication: DIABETES MELLITUS
     Dosage: 2 DF, 1X/DAY
  4. DIOVAN [Concomitant]
     Indication: HYPERTENSION
     Dosage: 160 MG, 1X/DAY

REACTIONS (7)
  - ARTHRALGIA [None]
  - BLOOD CHOLESTEROL INCREASED [None]
  - BLOOD GLUCOSE INCREASED [None]
  - BLOOD TRIGLYCERIDES INCREASED [None]
  - DIPLOPIA [None]
  - MYALGIA [None]
  - THERAPEUTIC RESPONSE DECREASED [None]
